FAERS Safety Report 14681488 (Version 1)
Quarter: 2018Q1

REPORT INFORMATION
  Report Type: Spontaneous
  Country: US (occurrence: US)
  Receive Date: 20180326
  Receipt Date: 20180326
  Transmission Date: 20180509
  Serious: Yes (Other)
  Sender: FDA-Public Use
  Company Number: US-AKRON, INC.-2044550

PATIENT
  Sex: Male

DRUGS (1)
  1. COGENTIN [Suspect]
     Active Substance: BENZTROPINE MESYLATE
     Route: 042

REACTIONS (5)
  - Dementia [None]
  - Emotional distress [None]
  - Impaired quality of life [None]
  - Erectile dysfunction [None]
  - Tremor [None]
